FAERS Safety Report 9075561 (Version 1)
Quarter: 2013Q1

REPORT INFORMATION
  Report Type: Spontaneous
  Country: US (occurrence: US)
  Receive Date: 20130131
  Receipt Date: 20130131
  Transmission Date: 20140127
  Serious: No
  Sender: FDA-Public Use
  Company Number: US-ABBOTT-12P-163-1004973-00

PATIENT
  Sex: Male
  Weight: 84.9 kg

DRUGS (5)
  1. HUMIRA [Suspect]
     Indication: ANKYLOSING SPONDYLITIS
     Route: 058
     Dates: start: 201205
  2. HUMIRA [Suspect]
     Indication: COLITIS ULCERATIVE
  3. TRICOR [Concomitant]
     Indication: BLOOD CHOLESTEROL INCREASED
  4. UNKNOWN MEDICATION [Concomitant]
     Indication: HYPERTENSION
  5. ARMOUR THYROID [Concomitant]
     Indication: HYPOTHYROIDISM

REACTIONS (1)
  - Arthralgia [Not Recovered/Not Resolved]
